FAERS Safety Report 7224193-6 (Version None)
Quarter: 2011Q1

REPORT INFORMATION
  Report Type: 
  Country: None (occurrence: None)
  Receive Date: 20110113
  Receipt Date: 20101216
  Transmission Date: 20110831
  Serious: Yes (Other)
  Sender: FDA-Public Use
  Company Number: US-BAYER-200943289NA

PATIENT
  Sex: Female

DRUGS (2)
  1. YASMIN [Suspect]
     Indication: PRODUCT USED FOR UNKNOWN INDICATION
     Dosage: UNK
  2. YAZ [Suspect]
     Indication: PRODUCT USED FOR UNKNOWN INDICATION
     Dosage: UNK
     Dates: start: 20070901, end: 20090501

REACTIONS (6)
  - GASTROOESOPHAGEAL REFLUX DISEASE [None]
  - VOMITING [None]
  - ABDOMINAL PAIN UPPER [None]
  - BILE DUCT STONE [None]
  - CHOLECYSTITIS ACUTE [None]
  - NAUSEA [None]
